FAERS Safety Report 14924085 (Version 1)
Quarter: 2018Q2

REPORT INFORMATION
  Report Type: Spontaneous
  Country: IT (occurrence: IT)
  Receive Date: 20180522
  Receipt Date: 20180522
  Transmission Date: 20180711
  Serious: Yes (Other)
  Sender: FDA-Public Use
  Company Number: IT-MYLANLABS-2018M1032442

PATIENT

DRUGS (8)
  1. UROMITEXAN [Suspect]
     Active Substance: MESNA
     Indication: PRODUCT USED FOR UNKNOWN INDICATION
     Dosage: 500 MG2 GIVEN INTRAVENOUS IMMEDIATELY BEFORE IFOSFAMIDE INFUSION ON DAYS 13 EVERY 14 DAYS FOR 2 CYC
     Route: 042
  2. HOLOXAN [Suspect]
     Active Substance: IFOSFAMIDE
     Indication: SARCOMA
     Dosage: 2500 MG/M2 BY 2-H INTRAVENOUS (IV) INFUSION ON DAYS 1-3 EVERY 14 DAYS FOR 2 CYCLES
     Route: 041
  3. DACARBAZINE. [Suspect]
     Active Substance: DACARBAZINE
     Indication: SARCOMA
     Dosage: 450 MG/M2 BY 1-H INTRAVENOUS (IV) INFUSION ON DAYS 1 AND 2 EVERY 14 DAYS FOR 2 CYCLES
     Route: 041
  4. FILGRASTIM [Concomitant]
     Active Substance: FILGRASTIM
     Indication: PROPHYLAXIS
     Dosage: FROM DAY 5 TO DAY 12 OF EACH CYCLE EVERY 14 DAYS FOR 2 CYCLES
     Route: 058
  5. DEXAMETHASONE. [Concomitant]
     Active Substance: DEXAMETHASONE
     Indication: ANTIEMETIC SUPPORTIVE CARE
     Route: 065
  6. EPIDOXORUBICINA [Suspect]
     Active Substance: EPIRUBICIN
     Indication: SARCOMA
     Dosage: 60 MG/M2 ON DAY 1 EVERY 14 DAYS FOR 2 CYCLES
     Route: 040
  7. MESNA. [Suspect]
     Active Substance: MESNA
     Indication: PRODUCT USED FOR UNKNOWN INDICATION
     Dosage: 1000 MG/M2 GIVEN ORALLY AT 4 AND 8 H ON DAYS 13 EVERY 14 DAYS FOR 2 CYCLES
     Route: 048
  8. ONDANSETRON [Concomitant]
     Active Substance: ONDANSETRON
     Indication: ANTIEMETIC SUPPORTIVE CARE
     Route: 065

REACTIONS (2)
  - Neutropenia [Unknown]
  - Thrombocytopenia [Unknown]
